FAERS Safety Report 5589681-7 (Version None)
Quarter: 2008Q1

REPORT INFORMATION
  Report Type: 
  Country: None (occurrence: None)
  Receive Date: 20080114
  Receipt Date: 20080103
  Transmission Date: 20080703
  Serious: Yes (Other)
  Sender: FDA-Public Use
  Company Number: B0416846A

PATIENT
  Sex: Male

DRUGS (7)
  1. SEROXAT [Suspect]
     Indication: DEPRESSION
     Route: 065
     Dates: start: 19970619
  2. KAPAKE [Concomitant]
     Dosage: 20MG THREE TIMES PER DAY
  3. LIORESAL [Concomitant]
     Dosage: 1TAB TWICE PER DAY
  4. RIVOTRIL [Concomitant]
     Dosage: 2TAB AT NIGHT
  5. XYLOPROCT [Concomitant]
  6. ANALGESIC [Concomitant]
     Route: 065
  7. CIPRAMIL [Concomitant]
     Dates: start: 19990705

REACTIONS (16)
  - AGGRESSION [None]
  - ANGER [None]
  - ANXIETY [None]
  - CONDITION AGGRAVATED [None]
  - DEPRESSION [None]
  - DIARRHOEA [None]
  - DISTURBANCE IN ATTENTION [None]
  - DRUG DEPENDENCE [None]
  - DRUG WITHDRAWAL SYNDROME [None]
  - IRRITABILITY [None]
  - LETHARGY [None]
  - MEMORY IMPAIRMENT [None]
  - NIGHTMARE [None]
  - OBSESSIVE THOUGHTS [None]
  - OBSESSIVE-COMPULSIVE DISORDER [None]
  - SLEEP DISORDER [None]
